FAERS Safety Report 7859326-1 (Version None)
Quarter: 2011Q4

REPORT INFORMATION
  Report Type: 
  Country: None (occurrence: None)
  Receive Date: 20111027
  Receipt Date: 20111020
  Transmission Date: 20120403
  Serious: Yes (Hospitalization)
  Sender: FDA-Public Use
  Company Number: KR-SANOFI-AVENTIS-2011SA069794

PATIENT
  Age: 70 Year
  Sex: Male

DRUGS (5)
  1. ALFUZOSIN HYDROCHLORIDE [Suspect]
     Route: 048
     Dates: start: 20050905
  2. BEZAFIBRATE [Concomitant]
     Indication: HYPERTENSION
     Route: 065
     Dates: start: 20110405
  3. AVODART [Suspect]
     Dosage: DOSE:1 UNIT(S)
     Route: 048
     Dates: start: 20050905
  4. AMLODIPINE [Concomitant]
     Indication: HYPERTENSION
     Dates: start: 20110405
  5. METFORMIN HCL [Concomitant]
     Indication: DIABETES MELLITUS
     Dosage: DOSE:1 UNIT(S)
     Route: 048
     Dates: start: 20110405

REACTIONS (1)
  - PNEUMONIA [None]
